FAERS Safety Report 17036948 (Version 1)
Quarter: 2019Q4

REPORT INFORMATION
  Report Type: Spontaneous
  Country: CL (occurrence: CL)
  Receive Date: 20191115
  Receipt Date: 20191115
  Transmission Date: 20200122
  Serious: Yes (Other)
  Sender: FDA-Public Use
  Company Number: CL-PFIZER INC-2019489519

PATIENT
  Sex: Female

DRUGS (1)
  1. CARDURA [Suspect]
     Active Substance: DOXAZOSIN MESYLATE
     Indication: HYPERTENSION
     Dosage: UNK

REACTIONS (2)
  - Infarction [Unknown]
  - Angiopathy [Unknown]
